FAERS Safety Report 7789890-2 (Version None)
Quarter: 2011Q3

REPORT INFORMATION
  Report Type: 
  Country: None (occurrence: None)
  Receive Date: 20110930
  Receipt Date: 20110330
  Transmission Date: 20111222
  Serious: No
  Sender: FDA-Public Use
  Company Number: US-ASTRAZENECA-2010SE31997

PATIENT
  Age: 74 Year
  Sex: Female

DRUGS (3)
  1. NEXIUM [Suspect]
     Route: 048
  2. ZOMIG [Suspect]
     Route: 048
  3. ARIMIDEX [Suspect]
     Route: 048

REACTIONS (4)
  - HEADACHE [None]
  - DRUG DOSE OMISSION [None]
  - NASOPHARYNGITIS [None]
  - DYSPEPSIA [None]
